FAERS Safety Report 9415812 (Version 1)
Quarter: 2013Q3

REPORT INFORMATION
  Report Type: Spontaneous
  Country: BR (occurrence: BR)
  Receive Date: 20130724
  Receipt Date: 20130724
  Transmission Date: 20140515
  Serious: Yes (Other)
  Sender: FDA-Public Use
  Company Number: BR-AMGEN-BRASP2013050885

PATIENT
  Age: 47 Year
  Sex: Male

DRUGS (3)
  1. ENBREL [Suspect]
     Indication: RHEUMATOID ARTHRITIS
     Dosage: 25 MG, 2X/WEEK
     Route: 065
     Dates: start: 2005, end: 2013
  2. PREDSIM [Concomitant]
     Dosage: 5 MG, 1X/DAY
     Dates: start: 1999
  3. PREDSIM [Concomitant]
     Dosage: 10 MG DAILY

REACTIONS (4)
  - Leukaemia [Unknown]
  - Asthenia [Unknown]
  - Malaise [Unknown]
  - Pain [Recovering/Resolving]
